FAERS Safety Report 22318473 (Version 1)
Quarter: 2023Q2

REPORT INFORMATION
  Report Type: Spontaneous
  Country: PL (occurrence: PL)
  Receive Date: 20230515
  Receipt Date: 20230515
  Transmission Date: 20230722
  Serious: Yes (Other)
  Sender: FDA-Public Use
  Company Number: PL-CHEPLA-2023005795

PATIENT
  Age: 75 Year
  Sex: Male

DRUGS (6)
  1. CAPECITABINE [Suspect]
     Active Substance: CAPECITABINE
     Indication: Squamous cell carcinoma of skin
     Dosage: TID, METRONOMIC CHEMOTHERAPY ?DAILY DOSE: 1500 MILLIGRAM
     Route: 048
     Dates: start: 2019
  2. CAPECITABINE [Suspect]
     Active Substance: CAPECITABINE
     Indication: Squamous cell carcinoma of skin
     Dosage: TID?DAILY DOSE: 1500 MILLIGRAM
     Route: 048
     Dates: start: 201910
  3. METHOTREXATE [Suspect]
     Active Substance: METHOTREXATE
     Indication: Squamous cell carcinoma of skin
     Dosage: ADMINISTERED TWICE A WEEK, METRONOMIC CHEMOTHERAPY
     Route: 048
     Dates: start: 2019
  4. CYCLOPHOSPHAMIDE [Suspect]
     Active Substance: CYCLOPHOSPHAMIDE
     Indication: Squamous cell carcinoma of skin
     Dosage: METRONOMIC CHEMOTHERAPY?DAILY DOSE: 50 MILLIGRAM
     Route: 048
     Dates: start: 2019
  5. CISPLATIN [Suspect]
     Active Substance: CISPLATIN
     Indication: Squamous cell carcinoma of skin
     Dosage: ADMINISTERED ON DAYS 1, 8, AND 15, REPEATED EVERY 28 DAYS
     Route: 042
     Dates: start: 201910
  6. PACLITAXEL [Suspect]
     Active Substance: PACLITAXEL
     Indication: Squamous cell carcinoma of skin
     Dosage: ADMINISTERED ON DAYS 1, 8, AND 15, REPEATED EVERY 28 DAYS
     Route: 042
     Dates: start: 201910

REACTIONS (4)
  - Neutropenia [Unknown]
  - Ototoxicity [Unknown]
  - Wound haemorrhage [Recovered/Resolved]
  - Product use in unapproved indication [Unknown]

NARRATIVE: CASE EVENT DATE: 20190101
